FAERS Safety Report 5836936-4 (Version None)
Quarter: 2008Q3

REPORT INFORMATION
  Report Type: 
  Country: None (occurrence: None)
  Receive Date: 20080805
  Receipt Date: 20080723
  Transmission Date: 20090109
  Serious: No
  Sender: FDA-Public Use
  Company Number: LIT-08-0004-W

PATIENT
  Age: 49 Year
  Sex: Male

DRUGS (1)
  1. ONDANSETRON [Suspect]

REACTIONS (2)
  - CROSS SENSITIVITY REACTION [None]
  - URTICARIA [None]
